FAERS Safety Report 4658161-5 (Version None)
Quarter: 2005Q2

REPORT INFORMATION
  Report Type: 
  Country: None (occurrence: None)
  Receive Date: 20050504
  Receipt Date: 20040812
  Transmission Date: 20051028
  Serious: Yes (Other)
  Sender: FDA-Public Use
  Company Number: PHEH2004US07799

PATIENT
  Age: 73 Year
  Sex: Female
  Weight: 62.6 kg

DRUGS (4)
  1. DIOVAN HCT [Suspect]
     Indication: HYPERTENSION
     Dosage: 1 DF, QD, ORAL
     Route: 048
     Dates: start: 20040525, end: 20040726
  2. LEVOXYL [Concomitant]
  3. GLUCOSAMINE (GLUCOSAMINE) [Concomitant]
  4. OSCAL (CALCIUM CARBONATE) [Concomitant]

REACTIONS (6)
  - ASTHENIA [None]
  - BLOOD CREATINE INCREASED [None]
  - BLOOD PRESSURE DECREASED [None]
  - BLOOD UREA INCREASED [None]
  - DEHYDRATION [None]
  - DIZZINESS [None]
